FAERS Safety Report 13303216 (Version 2)
Quarter: 2017Q1

REPORT INFORMATION
  Report Type: Spontaneous
  Country: JP (occurrence: JP)
  Receive Date: 20170307
  Receipt Date: 20170331
  Transmission Date: 20170428
  Serious: Yes (Hospitalization, Other)
  Sender: FDA-Public Use
  Company Number: JP-BAYER-2017-040753

PATIENT
  Sex: Female

DRUGS (2)
  1. SARPOGRELATE HYDROCHLORIDE [Interacting]
     Active Substance: SARPOGRELATE
     Indication: THROMBOSIS PROPHYLAXIS
     Dosage: UNK
     Route: 048
  2. BAYASPIRIN 100 MG [Suspect]
     Active Substance: ASPIRIN
     Indication: THROMBOSIS PROPHYLAXIS
     Dosage: UNK
     Route: 048

REACTIONS (7)
  - Haemoglobin decreased [None]
  - Small intestinal stenosis [None]
  - Accidental exposure to product packaging [None]
  - Drug administration error [None]
  - Rectal haemorrhage [None]
  - Small intestinal ulcer haemorrhage [None]
  - Labelled drug-drug interaction medication error [None]
